FAERS Safety Report 22626573 (Version 9)
Quarter: 2024Q2

REPORT INFORMATION
  Report Type: Report from Study
  Country: CA (occurrence: CA)
  Receive Date: 20230621
  Receipt Date: 20240609
  Transmission Date: 20240715
  Serious: Yes (Hospitalization)
  Sender: FDA-Public Use
  Company Number: CA-JNJFOC-20230569004

PATIENT
  Age: 75 Year
  Sex: Male

DRUGS (4)
  1. STELARA [Suspect]
     Active Substance: USTEKINUMAB
     Indication: Psoriasis
     Dosage: RESUMING STELARA POST DRUG HOLIDAY
     Route: 058
  2. STELARA [Suspect]
     Active Substance: USTEKINUMAB
     Route: 058
  3. STELARA [Suspect]
     Active Substance: USTEKINUMAB
     Dosage: \
     Route: 058
  4. STELARA [Suspect]
     Active Substance: USTEKINUMAB
     Dosage: RESUMING STELARA POST DRUG HOLIDAY
     Route: 058
     Dates: start: 20120130

REACTIONS (10)
  - Toxic shock syndrome [Unknown]
  - Colon cancer [Not Recovered/Not Resolved]
  - Poor peripheral circulation [Not Recovered/Not Resolved]
  - Colostomy [Recovering/Resolving]
  - Delirium [Not Recovered/Not Resolved]
  - Ulcer [Not Recovered/Not Resolved]
  - Skin ulcer [Unknown]
  - Memory impairment [Unknown]
  - Off label use [Unknown]
  - Drug ineffective [Unknown]

NARRATIVE: CASE EVENT DATE: 20230501
